FAERS Safety Report 20959663 (Version 2)
Quarter: 2022Q4

REPORT INFORMATION
  Report Type: Report from Study
  Country: US (occurrence: US)
  Receive Date: 20220614
  Receipt Date: 20221210
  Transmission Date: 20230112
  Serious: Yes (Other)
  Sender: FDA-Public Use
  Company Number: US-SHIRE-US201925005AA

PATIENT
  Sex: Female

DRUGS (1)
  1. HUMAN IMMUNOGLOBULIN G [Suspect]
     Active Substance: HUMAN IMMUNOGLOBULIN G
     Indication: Immunodeficiency common variable
     Dosage: 10 GRAM
     Route: 065

REACTIONS (5)
  - Pulmonary fibrosis [Unknown]
  - COVID-19 [Unknown]
  - Asthma [Unknown]
  - Malaise [Unknown]
  - Headache [Unknown]

NARRATIVE: CASE EVENT DATE: 20180101
